FAERS Safety Report 4654705-8 (Version None)
Quarter: 2005Q2

REPORT INFORMATION
  Report Type: 
  Country: None (occurrence: None)
  Receive Date: 20050504
  Receipt Date: 20050418
  Transmission Date: 20051028
  Serious: Yes (Life-Threatening, Hospitalization)
  Sender: FDA-Public Use
  Company Number: 8009529

PATIENT
  Age: 34 Year
  Sex: Female
  Weight: 72.4 kg

DRUGS (5)
  1. KEPPRA [Suspect]
     Indication: GRAND MAL CONVULSION
     Dosage: 500 MG 2/D PO
     Route: 048
     Dates: start: 20041207, end: 20050315
  2. DEPAKENE [Concomitant]
  3. LUTENYL [Concomitant]
  4. DOLIPRANE [Concomitant]
  5. ASPIRIN [Concomitant]

REACTIONS (25)
  - AGGRESSION [None]
  - CEREBELLAR HAEMORRHAGE [None]
  - CEREBRAL ISCHAEMIA [None]
  - CEREBRAL VENOUS THROMBOSIS [None]
  - CONVULSION [None]
  - CYTOLYTIC HEPATITIS [None]
  - DELIRIUM [None]
  - DIARRHOEA [None]
  - DRUG INTOLERANCE [None]
  - ELECTROENCEPHALOGRAM ABNORMAL [None]
  - ENDOMETRIOSIS [None]
  - EPILEPSY [None]
  - FALL [None]
  - FEELING ABNORMAL [None]
  - FIBRIN DEGRADATION PRODUCTS INCREASED [None]
  - INSOMNIA [None]
  - LOSS OF CONSCIOUSNESS [None]
  - MENTAL DISORDER [None]
  - MULTIPLE SCLEROSIS [None]
  - NECROSIS [None]
  - RENAL FAILURE [None]
  - RESTLESSNESS [None]
  - RHABDOMYOLYSIS [None]
  - THROMBOCYTOPENIA [None]
  - THROMBOPHLEBITIS [None]
